FAERS Safety Report 4320848-1 (Version None)
Quarter: 2004Q1

REPORT INFORMATION
  Report Type: 
  Country: None (occurrence: None)
  Receive Date: 20040318
  Receipt Date: 20040301
  Transmission Date: 20041129
  Serious: Yes (Other)
  Sender: FDA-Public Use
  Company Number: A0500479A

PATIENT
  Age: 64 Year
  Sex: Male

DRUGS (1)
  1. COMMIT [Suspect]
     Indication: EX-SMOKER
     Dosage: 4 MG/ TRANSBUCCAL
     Route: 002
     Dates: start: 20030930

REACTIONS (1)
  - DIABETES MELLITUS NON-INSULIN-DEPENDENT [None]
